FAERS Safety Report 8548966-2 (Version None)
Quarter: 2012Q3

REPORT INFORMATION
  Report Type: 
  Country: None (occurrence: None)
  Receive Date: 20120730
  Receipt Date: 20060510
  Transmission Date: 20120928
  Serious: Yes (Death)
  Sender: FDA-Public Use
  Company Number: US-ASTELLAS-2012US006509

PATIENT
  Sex: Male

DRUGS (3)
  1. TARCEVA [Suspect]
     Indication: LUNG NEOPLASM MALIGNANT
  2. TARCEVA [Suspect]
     Indication: TRACHEAL CANCER
     Dosage: UNK
  3. TARCEVA [Suspect]
     Indication: BRONCHIAL CARCINOMA

REACTIONS (2)
  - RASH [None]
  - DEATH [None]
